FAERS Safety Report 10532651 (Version 2)
Quarter: 2014Q4

REPORT INFORMATION
  Report Type: Spontaneous
  Country: US (occurrence: US)
  Receive Date: 20141021
  Receipt Date: 20141108
  Transmission Date: 20150529
  Serious: No
  Sender: FDA-Public Use
  Company Number: US-009507513-1410USA008232

PATIENT
  Age: 24 Year
  Sex: Female
  Weight: 78.91 kg

DRUGS (1)
  1. NEXPLANON [Suspect]
     Active Substance: ETONOGESTREL
     Indication: CONTRACEPTION
     Dosage: 68 MG/ ONCE EVERY 3 YEARS/ TOTAL DAILY DOSE: PER DEVICE
     Route: 059
     Dates: start: 20130814, end: 20141013

REACTIONS (3)
  - Device breakage [Recovered/Resolved]
  - Vaginal haemorrhage [Recovered/Resolved]
  - No adverse event [Unknown]

NARRATIVE: CASE EVENT DATE: 20130814
